FAERS Safety Report 9505493 (Version 1)
Quarter: 2013Q1

REPORT INFORMATION
  Report Type: Spontaneous
  Country: US (occurrence: None)
  Receive Date: 20130220
  Receipt Date: 20130220
  Transmission Date: 20140127
  Serious: No
  Sender: FDA-Public Use
  Company Number: 1000040794

PATIENT
  Age: 85 Year
  Sex: Female

DRUGS (10)
  1. VIIBRYD (VILAZODONE HYDROCHLORIDE) [Suspect]
     Indication: ANXIETY
     Dosage: 10 MG (10 MG, 1 IN 1 D), ORAL
     Route: 048
     Dates: start: 20121128, end: 20121204
  2. VIIBRYD (VILAZODONE HYDROCHLORIDE) [Suspect]
     Indication: ANXIETY
     Dosage: 20 MG (20 MG, 1 IN 1 D), ORAL
     Route: 048
     Dates: start: 20121205, end: 20130116
  3. HYDROCHLOROTHIAZIDE (HYDROCHLOROTHIAZIDE) (HYDROCHLOROTHIAZIDE) [Concomitant]
  4. BENAZEPRIL (BENAZEPRIL) (BENAZEPRIL) [Concomitant]
  5. TOPROL (METOPROLOL SUCCINATE) (METOPROLOL SUCCINATE) [Concomitant]
  6. ACYCLOVIR (ACYCLOVIR) (ACYCLOVIR) [Concomitant]
  7. ASPIRIN (ACETYLSALICYLIC ACID) (ACETYLSALICYLIC ACID) [Concomitant]
  8. METFORMIN (METFORMIN) (METFORMIN) [Concomitant]
  9. PROTONIX (PANTOPRAZOLE SODIUM SESQUIHYDRATE) (PANTOPRAZOLE SODIUM SESQUIHYDRATE) [Concomitant]
  10. XANAX (ALPRAZOLAM) (ALPRAZOLAM) [Concomitant]

REACTIONS (9)
  - Tinnitus [None]
  - Dizziness [None]
  - Asthenia [None]
  - Off label use [None]
  - Dyspepsia [None]
  - Gastrooesophageal reflux disease [None]
  - Headache [None]
  - Burning sensation [None]
  - Decreased appetite [None]
